FAERS Safety Report 6847809-2 (Version None)
Quarter: 2010Q3

REPORT INFORMATION
  Report Type: 
  Country: None (occurrence: None)
  Receive Date: 20100714
  Receipt Date: 20100706
  Transmission Date: 20110219
  Serious: Yes (Hospitalization, Other)
  Sender: FDA-Public Use
  Company Number: RB-12703-2010

PATIENT
  Sex: Female

DRUGS (4)
  1. SUBOXONE [Suspect]
     Indication: DRUG DEPENDENCE
     Dosage: 16 MG QD SUBLINGUAL
     Route: 060
     Dates: start: 20090916, end: 20091102
  2. SUBUTEX [Suspect]
     Indication: DRUG DEPENDENCE
     Dosage: 16 MG QD SUBLINGUAL, 12 MG QD SUBLINGUAL, 8 MG QD SUBLINGUAL
     Route: 060
     Dates: start: 20091103, end: 20091116
  3. SUBUTEX [Suspect]
     Indication: DRUG DEPENDENCE
     Dosage: 16 MG QD SUBLINGUAL, 12 MG QD SUBLINGUAL, 8 MG QD SUBLINGUAL
     Route: 060
     Dates: start: 20091117, end: 20091214
  4. SUBUTEX [Suspect]
     Indication: DRUG DEPENDENCE
     Dosage: 16 MG QD SUBLINGUAL, 12 MG QD SUBLINGUAL, 8 MG QD SUBLINGUAL
     Route: 060
     Dates: start: 20091215, end: 20100628

REACTIONS (4)
  - DRUG EXPOSURE DURING PREGNANCY [None]
  - INTRA-UTERINE DEATH [None]
  - MECONIUM IN AMNIOTIC FLUID [None]
  - WHITE BLOOD CELL COUNT INCREASED [None]
